FAERS Safety Report 14546053 (Version 1)
Quarter: 2018Q1

REPORT INFORMATION
  Report Type: Spontaneous
  Country: US (occurrence: US)
  Receive Date: 20180219
  Receipt Date: 20180219
  Transmission Date: 20180509
  Serious: No
  Sender: FDA-Public Use
  Company Number: US-TEVA-816093ACC

PATIENT
  Sex: Male

DRUGS (1)
  1. MIRTAZAPINE. [Suspect]
     Active Substance: MIRTAZAPINE

REACTIONS (3)
  - Drug ineffective [Unknown]
  - Product solubility abnormal [Unknown]
  - Quality of life decreased [Unknown]
